FAERS Safety Report 17923101 (Version 1)
Quarter: 2020Q2

REPORT INFORMATION
  Report Type: Spontaneous
  Country: DE (occurrence: DE)
  Receive Date: 20200622
  Receipt Date: 20200622
  Transmission Date: 20200714
  Serious: Yes (Hospitalization)
  Sender: FDA-Public Use
  Company Number: DE-TEVA-2020-DE-1789057

PATIENT
  Age: 90 Year
  Sex: Male

DRUGS (6)
  1. SPIRONOLACTON [Concomitant]
     Active Substance: SPIRONOLACTONE
     Dosage: 50 MILLIGRAM DAILY; 1-0-0-0
     Route: 048
  2. ATORVASTATIN [Concomitant]
     Active Substance: ATORVASTATIN
     Dosage: 20 MILLIGRAM DAILY;  0-0-1-0
     Route: 048
  3. PANTOPRAZOL [Concomitant]
     Active Substance: PANTOPRAZOLE SODIUM
     Dosage: 40 MILLIGRAM DAILY; 1-0-0-0
     Route: 048
  4. METOPROLOL. [Suspect]
     Active Substance: METOPROLOL
     Dosage: 47.5 MILLIGRAM DAILY; 1-0-0-0
     Route: 048
  5. TORASEMID [Concomitant]
     Active Substance: TORSEMIDE
     Dosage: 10 MG, 1-0.5-0-0
     Route: 048
  6. DABIGATRAN [Concomitant]
     Active Substance: DABIGATRAN
     Dosage: 220 MILLIGRAM DAILY; 110 MG, 1-0-1-0
     Route: 048

REACTIONS (2)
  - General physical health deterioration [Unknown]
  - Condition aggravated [Unknown]
